FAERS Safety Report 12791369 (Version 1)
Quarter: 2016Q3

REPORT INFORMATION
  Report Type: Spontaneous
  Country: US (occurrence: US)
  Receive Date: 20160929
  Receipt Date: 20160929
  Transmission Date: 20161109
  Serious: No
  Sender: FDA-Public Use
  Company Number: US-AUROBINDO-AUR-APL-2015-04713

PATIENT
  Sex: Female

DRUGS (1)
  1. ALENDRONATE SODIUM 70 [Suspect]
     Active Substance: ALENDRONATE SODIUM
     Indication: OSTEOPOROSIS
     Dosage: 70 MG, EVERY WEEK
     Route: 048

REACTIONS (1)
  - Groin pain [Not Recovered/Not Resolved]
